FAERS Safety Report 7389214-9 (Version None)
Quarter: 2011Q2

REPORT INFORMATION
  Report Type: 
  Country: None (occurrence: None)
  Receive Date: 20110401
  Receipt Date: 20110321
  Transmission Date: 20111010
  Serious: Yes (Death)
  Sender: FDA-Public Use
  Company Number: US-SANOFI-AVENTIS-2011SA012767

PATIENT
  Age: 73 Year
  Sex: Male
  Weight: 82.3 kg

DRUGS (6)
  1. MULTAQ [Suspect]
     Route: 048
     Dates: start: 20091101, end: 20100326
  2. METOPROLOL SUCCINATE [Suspect]
     Route: 065
  3. DIGOXIN [Concomitant]
     Indication: ATRIAL FIBRILLATION
     Dates: start: 20091101
  4. IRON [Concomitant]
  5. ASPIRIN [Concomitant]
  6. AMBIEN [Concomitant]

REACTIONS (1)
  - VENTRICULAR FIBRILLATION [None]
